FAERS Safety Report 5990378-X (Version None)
Quarter: 2008Q4

REPORT INFORMATION
  Report Type: 
  Country: None (occurrence: None)
  Receive Date: 20081209
  Receipt Date: 20081202
  Transmission Date: 20090506
  Serious: Yes (Other)
  Sender: FDA-Public Use
  Company Number: 2008S1000603

PATIENT
  Age: 9 Week

DRUGS (2)
  1. AZATHIOPRINE [Suspect]
     Dosage: TRMA
     Route: 063
  2. COLAZAL [Suspect]
     Indication: COLITIS ULCERATIVE
     Dosage: TRMA
     Route: 063

REACTIONS (2)
  - DRUG EXPOSURE VIA BREAST MILK [None]
  - RECTAL HAEMORRHAGE [None]
